FAERS Safety Report 24050594 (Version 5)
Quarter: 2024Q3

REPORT INFORMATION
  Report Type: Spontaneous
  Country: US (occurrence: US)
  Receive Date: 20240704
  Receipt Date: 20240816
  Transmission Date: 20241017
  Serious: Yes (Death, Hospitalization)
  Sender: TEVA
  Company Number: US-TEVA-VS-3205844

PATIENT
  Age: 64 Year
  Sex: Male

DRUGS (78)
  1. TRAMADOL [Suspect]
     Active Substance: TRAMADOL\TRAMADOL HYDROCHLORIDE
     Indication: Arthralgia
     Route: 065
  2. TRAMADOL [Suspect]
     Active Substance: TRAMADOL\TRAMADOL HYDROCHLORIDE
     Indication: Arthralgia
     Dosage: TIME INTERVAL: AS NECESSARY: EVERY 4 TO 6 HOURS AS NEEDED.
     Route: 065
     Dates: start: 20111209
  3. TRAMADOL [Suspect]
     Active Substance: TRAMADOL\TRAMADOL HYDROCHLORIDE
     Indication: Arthralgia
     Route: 065
     Dates: start: 20170609
  4. ZETIA [Concomitant]
     Active Substance: EZETIMIBE
     Dosage: 1 TAB(S), ORAL, DAILY, 30 TAB(S)
     Route: 048
  5. AVELOX [Concomitant]
     Active Substance: MOXIFLOXACIN HYDROCHLORIDE
     Route: 048
  6. METHYLPREDNISOLONE [Concomitant]
     Active Substance: METHYLPREDNISOLONE
  7. EPIPEN [Concomitant]
     Active Substance: EPINEPHRINE
  8. FORTESTA [Concomitant]
     Active Substance: TESTOSTERONE
  9. MUPIROCIN [Concomitant]
     Active Substance: MUPIROCIN
  10. OMEPRAZOLE [Concomitant]
     Active Substance: OMEPRAZOLE
  11. HYALURONIC ACID [Concomitant]
     Active Substance: HYALURONIC ACID
  12. Relion [Concomitant]
     Dosage: (70-30) 100 UNIT/ML
  13. MORPHINE SULFATE [Suspect]
     Active Substance: MORPHINE SULFATE
     Route: 065
  14. VICODIN [Concomitant]
     Active Substance: ACETAMINOPHEN\HYDROCODONE BITARTRATE
     Indication: Arthralgia
     Dosage: (5-500MG) EVERY 4-6 HOURS AS NEEDED
     Dates: start: 20120518, end: 20130718
  15. VICODIN [Concomitant]
     Active Substance: ACETAMINOPHEN\HYDROCODONE BITARTRATE
     Indication: Arthralgia
     Dosage: (10-660MG)
     Dates: start: 20130301
  16. VICODIN [Concomitant]
     Active Substance: ACETAMINOPHEN\HYDROCODONE BITARTRATE
     Indication: Arthralgia
     Dosage: 5-500 MG, 1 TAB  QHS AS NEEDED
     Dates: start: 20131107
  17. VICODIN [Concomitant]
     Active Substance: ACETAMINOPHEN\HYDROCODONE BITARTRATE
     Indication: Arthralgia
     Dosage: 5-300 MG, 1 TAB QHS
     Route: 065
  18. VICODIN [Concomitant]
     Active Substance: ACETAMINOPHEN\HYDROCODONE BITARTRATE
     Indication: Arthralgia
     Dosage: 5-325 MG,
     Route: 065
  19. VICODIN [Concomitant]
     Active Substance: ACETAMINOPHEN\HYDROCODONE BITARTRATE
     Indication: Arthralgia
     Dosage: 5-325 MG
     Route: 065
     Dates: start: 20160211
  20. VICODIN [Concomitant]
     Active Substance: ACETAMINOPHEN\HYDROCODONE BITARTRATE
     Indication: Arthralgia
     Dosage: TIME INTERVAL: 0.33333333 DAYS: 5-325 MG
     Route: 065
  21. MS CONTIN [Concomitant]
     Active Substance: MORPHINE SULFATE
     Dosage: ER
     Route: 065
     Dates: start: 20170609
  22. MS CONTIN [Concomitant]
     Active Substance: MORPHINE SULFATE
     Dosage: 15 MG IR
  23. GABAPENTIN [Concomitant]
     Active Substance: GABAPENTIN
     Route: 065
  24. GABAPENTIN [Concomitant]
     Active Substance: GABAPENTIN
     Dosage: TIME INTERVAL: 0.33333333 DAYS
     Dates: start: 20161216
  25. GABAPENTIN [Concomitant]
     Active Substance: GABAPENTIN
     Dosage: TIME INTERVAL: 0.33333333 DAYS
     Route: 065
  26. etomidate iv [Concomitant]
  27. PROPOFOL [Concomitant]
     Active Substance: PROPOFOL
  28. ATROPINE [Concomitant]
     Active Substance: ATROPINE
  29. AMIODARONE [Concomitant]
     Active Substance: AMIODARONE
  30. visco injections [Concomitant]
     Indication: Osteoarthritis
  31. PERCOCET [Suspect]
     Active Substance: ACETAMINOPHEN\OXYCODONE HYDROCHLORIDE
     Dosage: (5-325MG) TAKEN 1-2 TABLETS?BY MOUTH EVERY 6-8 HOURS AS NEEDED.
     Route: 048
  32. MOBIC [Concomitant]
     Active Substance: MELOXICAM
     Indication: Pain
     Dosage: FOR 3-4 WEEKS
     Route: 065
     Dates: start: 20130809
  33. MOBIC [Concomitant]
     Active Substance: MELOXICAM
     Indication: Pain
     Dates: start: 20170120
  34. CYMBALTA [Concomitant]
     Active Substance: DULOXETINE HYDROCHLORIDE
     Indication: Arthralgia
     Route: 065
  35. CYMBALTA [Concomitant]
     Active Substance: DULOXETINE HYDROCHLORIDE
     Indication: Arthralgia
     Route: 065
     Dates: start: 20161216
  36. VOLTAREN [Concomitant]
     Active Substance: DICLOFENAC SODIUM
     Route: 065
  37. TYLENOL [Concomitant]
     Active Substance: ACETAMINOPHEN
     Route: 065
     Dates: start: 20161216
  38. TYLENOL [Concomitant]
     Active Substance: ACETAMINOPHEN
     Route: 065
     Dates: start: 20170120
  39. EUFLEXXA [Concomitant]
     Active Substance: HYALURONATE SODIUM
     Dosage: 20MG/2ML
     Route: 065
  40. ASPIRIN [Concomitant]
     Active Substance: ASPIRIN
     Route: 048
  41. ASPIRIN [Concomitant]
     Active Substance: ASPIRIN
     Route: 048
     Dates: start: 2014
  42. ATORVASTATIN [Concomitant]
     Active Substance: ATORVASTATIN
     Dosage: 2 TAB DAILY BED TIME
     Route: 048
  43. CARVEDILOL [Concomitant]
     Active Substance: CARVEDILOL
     Dosage: 1 TAB(S), ORAL, BID, 180 TAB(S)
     Route: 048
  44. COLACE [Concomitant]
     Active Substance: DOCUSATE SODIUM
     Dosage: 1 CAP BID
     Route: 048
  45. DULCOLAX LAXATIVE [Concomitant]
     Active Substance: BISACODYL
     Dosage: 12.5/25 ML
     Route: 042
  46. DUONEB [Concomitant]
     Active Substance: ALBUTEROL SULFATE\IPRATROPIUM BROMIDE
     Dosage: 3 ML, NEB, RTQID
  47. ELIQUIS [Concomitant]
     Active Substance: APIXABAN
     Dosage: 1 TAB
     Route: 048
  48. SACCHAROMYCES CEREVISIAE [Concomitant]
     Active Substance: SACCHAROMYCES CEREVISIAE
     Route: 048
  49. GABAPENTIN [Concomitant]
     Active Substance: GABAPENTIN
     Route: 048
  50. GLUCAGON [Concomitant]
     Active Substance: GLUCAGON\GLUCAGON HYDROCHLORIDE\WATER
     Dosage: 1 MG/ 1 KIT (S) IM AS INDICATED ,PRN
     Route: 030
  51. LASIX [Concomitant]
     Active Substance: FUROSEMIDE
     Dosage: 40 MG/4 ML, IV PUSH, DAILY
     Route: 042
  52. LASIX [Concomitant]
     Active Substance: FUROSEMIDE
     Route: 048
  53. LEVAQUIN [Concomitant]
     Active Substance: LEVOFLOXACIN
     Dosage: 750 MG/ 3 TABS,Q24H
     Route: 048
  54. Lotrimin AF cream [Concomitant]
     Route: 061
  55. MAALOX ANTACID [Concomitant]
     Active Substance: ALUMINUM HYDROXIDE\DIMETHICONE\MAGNESIUM HYDROXIDE
     Route: 048
  56. NOVOLIN NOS [Concomitant]
     Active Substance: INSULIN HUMAN
     Dosage: 13 UNITS/ 0.13 ML, WM (BREAKFAST AND SUPPER)?DAILY AT BEDTIME
     Route: 058
  57. NovoLOG sliding scale [Concomitant]
     Dosage: MEDIUM DOSE (AC AND BEDTIME)
     Route: 058
  58. POTASSIUM CHLORIDE [Concomitant]
     Active Substance: POTASSIUM CHLORIDE
     Dosage: 40 MEQ/2 TABS
     Route: 048
  59. POTASSIUM CHLORIDE [Concomitant]
     Active Substance: POTASSIUM CHLORIDE
     Dosage: EXTENDED RELEASE 20MG/1 TAB
     Route: 048
  60. PREDNISONE [Concomitant]
     Active Substance: PREDNISONE
     Dosage: 20 MG/ 1 TAB
     Route: 048
  61. PREDNISONE [Concomitant]
     Active Substance: PREDNISONE
     Route: 048
  62. PROVENTIL [Concomitant]
     Active Substance: ALBUTEROL
     Dosage: 2.5 MG/3 ML (0.083%) , NEB, RTQ4H, PRN
  63. TUMS [Concomitant]
     Active Substance: CALCIUM CARBONATE
     Dosage: 500, 1000MG/2 TABS, CHEWED, Q6H,PRN
     Route: 048
  64. ZOFRAN [Concomitant]
     Active Substance: ONDANSETRON HYDROCHLORIDE
     Dosage: 4MG/2ML, Q6H,PRN
     Route: 042
  65. ALBUTEROL CFC [Concomitant]
     Dosage: 90 MCG/INHALATION AEROSOL, 1 PUFF, INHALE, Q6H,PRN
  66. COREG [Concomitant]
     Active Substance: CARVEDILOL
     Route: 048
  67. ECOTRIN [Concomitant]
     Active Substance: ASPIRIN
     Dosage: ADULT DOSE LOW STRENGTH
  68. GLUCOPHAGE [Concomitant]
     Active Substance: METFORMIN HYDROCHLORIDE
     Route: 048
  69. LIPITOR [Concomitant]
     Active Substance: ATORVASTATIN CALCIUM
     Route: 048
  70. NEURONTIN [Concomitant]
     Active Substance: GABAPENTIN
     Dosage: 600 MG/6 CAPS ORAL, TID
     Route: 048
  71. PROTONIX [Concomitant]
     Active Substance: PANTOPRAZOLE SODIUM
     Dosage: DELAYED RELEASE
     Route: 048
  72. ZESTRIL [Concomitant]
     Active Substance: LISINOPRIL
     Route: 048
  73. ACETAMINOPHEN\OXYCODONE HYDROCHLORIDE [Suspect]
     Active Substance: ACETAMINOPHEN\OXYCODONE HYDROCHLORIDE
     Dosage: 5-325 MG 1-2 TABLETS EVERY 4-6 HOURS AS NEEDED
     Route: 065
     Dates: start: 20140914
  74. CRESTOR [Concomitant]
     Active Substance: ROSUVASTATIN CALCIUM
  75. FAMOTIDINE [Concomitant]
     Active Substance: FAMOTIDINE
  76. ACETAMINOPHENCODEINE [Concomitant]
  77. TRAMADOL HCL [Suspect]
     Active Substance: TRAMADOL HYDROCHLORIDE
     Indication: Product used for unknown indication
     Route: 065
  78. NORCO [Concomitant]
     Active Substance: ACETAMINOPHEN\HYDROCODONE BITARTRATE
     Indication: Breakthrough pain
     Dosage: 5MG - 325MG
     Route: 048

REACTIONS (6)
  - Respiratory distress [Fatal]
  - Pain in extremity [Unknown]
  - Overdose [Unknown]
  - Respiratory failure [Unknown]
  - Mental status changes [Unknown]
  - Drug dependence [Unknown]

NARRATIVE: CASE EVENT DATE: 20170421
